FAERS Safety Report 6749461-3 (Version None)
Quarter: 2010Q2

REPORT INFORMATION
  Report Type: 
  Country: None (occurrence: None)
  Receive Date: 20100601
  Receipt Date: 20100525
  Transmission Date: 20101027
  Serious: Yes (Other)
  Sender: FDA-Public Use
  Company Number: US-SANOFI-AVENTIS-2010SA030082

PATIENT
  Age: 69 Year
  Sex: Male

DRUGS (3)
  1. MULTAQ [Suspect]
     Indication: ATRIAL FIBRILLATION
     Route: 048
     Dates: start: 20100201
  2. METOPROLOL TARTRATE [Concomitant]
     Indication: ATRIAL FIBRILLATION
     Route: 048
     Dates: start: 20091201
  3. METOPROLOL TARTRATE [Concomitant]
     Route: 048

REACTIONS (2)
  - PROSTATOMEGALY [None]
  - URINARY RETENTION [None]
